FAERS Safety Report 5618198-6 (Version None)
Quarter: 2008Q1

REPORT INFORMATION
  Report Type: 
  Country: None (occurrence: None)
  Receive Date: 20080207
  Receipt Date: 20071205
  Transmission Date: 20080703
  Serious: No
  Sender: FDA-Public Use
  Company Number: A0697510A

PATIENT
  Age: 59 Year
  Sex: Female

DRUGS (7)
  1. PAXIL [Suspect]
     Indication: DEPRESSION
     Dosage: 20MG PER DAY
     Route: 048
     Dates: start: 20071004
  2. AMITRIPTYLINE HCL [Concomitant]
  3. DICLOFENAC [Concomitant]
  4. ACEON [Concomitant]
  5. FOSAMAX [Concomitant]
  6. RHINOCORT [Concomitant]
  7. EFFEXOR XR [Concomitant]

REACTIONS (1)
  - DEPRESSIVE SYMPTOM [None]
